FAERS Safety Report 5619575-X (Version None)
Quarter: 2008Q1

REPORT INFORMATION
  Report Type: 
  Country: None (occurrence: None)
  Receive Date: 20080205
  Receipt Date: 20080205
  Transmission Date: 20080703
  Serious: Yes (Other)
  Sender: FDA-Public Use
  Company Number: None

PATIENT
  Age: 32 Year
  Sex: Female
  Weight: 56.6996 kg

DRUGS (1)
  1. CHANTIX [Suspect]
     Indication: SMOKING CESSATION THERAPY
     Dosage: 2 MG 2 TIMES PER DAY PO
     Route: 048
     Dates: start: 20070315, end: 20070615

REACTIONS (2)
  - ABNORMAL BEHAVIOUR [None]
  - SUICIDAL IDEATION [None]
